FAERS Safety Report 7212468-6 (Version None)
Quarter: 2011Q1

REPORT INFORMATION
  Report Type: 
  Country: None (occurrence: None)
  Receive Date: 20110106
  Receipt Date: 20101231
  Transmission Date: 20110831
  Serious: Yes (Death, Hospitalization, Other)
  Sender: FDA-Public Use
  Company Number: CN-BAYER-201039516GPV

PATIENT
  Sex: Male
  Weight: 60 kg

DRUGS (1)
  1. SORAFENIB (RAF KINASE INHIBITOR) [Suspect]
     Indication: HEPATIC NEOPLASM MALIGNANT
     Route: 048
     Dates: start: 20100728, end: 20100824

REACTIONS (5)
  - HEPATIC FUNCTION ABNORMAL [None]
  - BLOOD BILIRUBIN INCREASED [None]
  - ASPARTATE AMINOTRANSFERASE INCREASED [None]
  - ALANINE AMINOTRANSFERASE INCREASED [None]
  - GAMMA-GLUTAMYLTRANSFERASE INCREASED [None]
